FAERS Safety Report 12140981 (Version 2)
Quarter: 2016Q4

REPORT INFORMATION
  Report Type: Spontaneous
  Country: US (occurrence: US)
  Receive Date: 20160303
  Receipt Date: 20161130
  Transmission Date: 20170207
  Serious: Yes (Other)
  Sender: FDA-Public Use
  Company Number: US-ELI_LILLY_AND_COMPANY-US201602009363

PATIENT
  Sex: Female
  Weight: 93 kg

DRUGS (2)
  1. CYMBALTA [Suspect]
     Active Substance: DULOXETINE HYDROCHLORIDE
     Indication: PAIN
     Dosage: 30 MG, QD
     Route: 048
  2. CYMBALTA [Suspect]
     Active Substance: DULOXETINE HYDROCHLORIDE
     Indication: DEPRESSION
     Dosage: 120 MG, QD
     Route: 048
     Dates: end: 20131216

REACTIONS (27)
  - Memory impairment [Unknown]
  - Dizziness [Unknown]
  - Hot flush [Unknown]
  - Confusional state [Unknown]
  - Affect lability [Unknown]
  - Nausea [Unknown]
  - Vomiting [Unknown]
  - Vertigo [Unknown]
  - Paraesthesia [Unknown]
  - Sensory disturbance [Unknown]
  - Diarrhoea [Unknown]
  - Irritability [Unknown]
  - Pollakiuria [Unknown]
  - Fatigue [Unknown]
  - Dysphoria [Unknown]
  - Agitation [Unknown]
  - Lethargy [Unknown]
  - Swelling [Unknown]
  - Vision blurred [Unknown]
  - Weight increased [Unknown]
  - Headache [Unknown]
  - Anxiety [Unknown]
  - Nightmare [Unknown]
  - Suicidal ideation [Unknown]
  - Hyperhidrosis [Unknown]
  - Withdrawal syndrome [Unknown]
  - Insomnia [Unknown]
